FAERS Safety Report 21141666 (Version 1)
Quarter: 2022Q3

REPORT INFORMATION
  Report Type: Spontaneous
  Country: US (occurrence: None)
  Receive Date: 20220727
  Receipt Date: 20220727
  Transmission Date: 20221027
  Serious: Yes (Other)
  Sender: FDA-Public Use
  Company Number: None

PATIENT
  Age: 50 Year
  Sex: Female
  Weight: 67.5 kg

DRUGS (8)
  1. MAGNESIUM CITRATE [Suspect]
     Active Substance: MAGNESIUM CITRATE
     Indication: Colonoscopy
     Dosage: OTHER QUANTITY : 10 OUNCE(S);?OTHER FREQUENCY : 6PM ON 7/6;?
     Route: 048
     Dates: start: 20220706, end: 20220706
  2. Citalopram 10mg daily [Concomitant]
  3. Hyoscyamine .125 mg as needed [Concomitant]
  4. ONDANSETRON [Concomitant]
     Active Substance: ONDANSETRON
  5. Occasional nose spray for allergies [Concomitant]
  6. Zyrtec [Concomitant]
  7. daily Vitamin D [Concomitant]
  8. VITAMINS [Concomitant]
     Active Substance: VITAMINS

REACTIONS (5)
  - Headache [None]
  - Vomiting [None]
  - Illness [None]
  - Therapy interrupted [None]
  - Drug intolerance [None]

NARRATIVE: CASE EVENT DATE: 20220707
